FAERS Safety Report 19025094 (Version 2)
Quarter: 2021Q1

REPORT INFORMATION
  Report Type: Spontaneous
  Country: US (occurrence: US)
  Receive Date: 20210318
  Receipt Date: 20210327
  Transmission Date: 20210420
  Serious: No
  Sender: FDA-Public Use
  Company Number: US-UNITED THERAPEUTICS-UNT-2021-003935

PATIENT
  Sex: Male

DRUGS (4)
  1. REMODULIN [Suspect]
     Active Substance: TREPROSTINIL
     Dosage: 0.0363 ?G/KG, CONTINUING
     Route: 058
     Dates: start: 20210109
  2. MACITENTAN [Concomitant]
     Active Substance: MACITENTAN
     Indication: PULMONARY ARTERIAL HYPERTENSION
     Dosage: 10 MG, QD
     Route: 048
     Dates: start: 20190916
  3. REMODULIN [Suspect]
     Active Substance: TREPROSTINIL
     Dosage: 0.0321 ?G/KG, CONTINUING
     Route: 058
  4. REMODULIN [Suspect]
     Active Substance: TREPROSTINIL
     Indication: PULMONARY ARTERIAL HYPERTENSION
     Dosage: UNK, CONTINUING
     Route: 058
     Dates: start: 20190530

REACTIONS (9)
  - Exercise tolerance decreased [Unknown]
  - Infusion site pain [Not Recovered/Not Resolved]
  - Infusion site vesicles [Not Recovered/Not Resolved]
  - Infusion site swelling [Not Recovered/Not Resolved]
  - Infusion site rash [Not Recovered/Not Resolved]
  - Oedema [Unknown]
  - Weight increased [Unknown]
  - Immune system disorder [Unknown]
  - Subcutaneous drug absorption impaired [Unknown]
